FAERS Safety Report 13590490 (Version 1)
Quarter: 2017Q2

REPORT INFORMATION
  Report Type: Spontaneous
  Country: JP (occurrence: JP)
  Receive Date: 20170530
  Receipt Date: 20170530
  Transmission Date: 20170830
  Serious: Yes (Other)
  Sender: FDA-Public Use
  Company Number: JP-GLAXOSMITHKLINE-JP2017JPN077908

PATIENT
  Age: 32 Year
  Sex: Female

DRUGS (1)
  1. LAMICTAL [Suspect]
     Active Substance: LAMOTRIGINE
     Dosage: UNK
     Route: 048
     Dates: start: 201606, end: 201607

REACTIONS (1)
  - Drug reaction with eosinophilia and systemic symptoms [Unknown]
